FAERS Safety Report 8835648 (Version 1)
Quarter: 2012Q4

REPORT INFORMATION
  Report Type: 
  Country: US (occurrence: US)
  Receive Date: 20121011
  Receipt Date: 20121011
  Transmission Date: 20130627
  Serious: Yes (Hospitalization)
  Sender: FDA-Public Use
  Company Number: US-PERRIGO-12US008642

PATIENT
  Age: 28 Year
  Sex: Female

DRUGS (1)
  1. GRISEOFULVIN [Suspect]
     Indication: PRODUCT USED FOR UNKNOWN INDICATION
     Dosage: Unknown, Unknown
     Route: 065

REACTIONS (4)
  - Focal segmental glomerulosclerosis [Recovered/Resolved]
  - Tubulointerstitial nephritis [Recovered/Resolved]
  - Blood creatinine increased [Recovered/Resolved]
  - Proteinuria [Recovered/Resolved]
